FAERS Safety Report 19548829 (Version 2)
Quarter: 2021Q3

REPORT INFORMATION
  Report Type: Spontaneous
  Country: US (occurrence: US)
  Receive Date: 20210714
  Receipt Date: 20210714
  Transmission Date: 20211014
  Serious: No
  Sender: FDA-Public Use
  Company Number: US-JNJFOC-20210547366

PATIENT
  Age: 22 Year
  Sex: Male

DRUGS (10)
  1. ADVIL [Concomitant]
     Active Substance: IBUPROFEN
     Indication: FEELING OF BODY TEMPERATURE CHANGE
  2. TYLENOL [Suspect]
     Active Substance: ACETAMINOPHEN
     Indication: PAIN
  3. TYLENOL [Suspect]
     Active Substance: ACETAMINOPHEN
     Indication: FEELING OF BODY TEMPERATURE CHANGE
  4. TYLENOL [Suspect]
     Active Substance: ACETAMINOPHEN
     Indication: HEADACHE
     Route: 065
     Dates: start: 202104
  5. ADVIL [Concomitant]
     Active Substance: IBUPROFEN
     Indication: HEADACHE
     Route: 065
  6. ADVIL [Concomitant]
     Active Substance: IBUPROFEN
     Indication: FATIGUE
  7. ADVIL [Concomitant]
     Active Substance: IBUPROFEN
     Indication: PAIN
  8. TYLENOL [Suspect]
     Active Substance: ACETAMINOPHEN
     Indication: FATIGUE
  9. COVID?19 VACCINE [Concomitant]
     Indication: PRODUCT USED FOR UNKNOWN INDICATION
     Route: 065
     Dates: start: 20210408
  10. KETOROLAC [Concomitant]
     Active Substance: KETOROLAC TROMETHAMINE
     Indication: HEADACHE
     Route: 065
     Dates: start: 20210416

REACTIONS (3)
  - Therapeutic response unexpected [Unknown]
  - Therapeutic product effect incomplete [Unknown]
  - Product use in unapproved indication [Unknown]

NARRATIVE: CASE EVENT DATE: 202104
